FAERS Safety Report 7944707-8 (Version None)
Quarter: 2011Q4

REPORT INFORMATION
  Report Type: 
  Country: None (occurrence: None)
  Receive Date: 20111114
  Receipt Date: 20110818
  Transmission Date: 20120403
  Serious: No
  Sender: FDA-Public Use
  Company Number: 1000017681

PATIENT
  Age: 44 Year
  Sex: Female

DRUGS (9)
  1. TOPAMAX (TOPIRAMATE) (50 MILLIGRAM, TABLETS) (TOPIRAMATE) [Concomitant]
  2. SYNTHROID (LEVOTHYROXINE SODIUM) (LEVOTHYROXINE SODIUM) [Concomitant]
  3. CELEXA (CITALOPRAMIDE) (20 MILLIGRAM, TABLETS) (CITALOPRAM HYDROBROMID [Concomitant]
  4. SAVELLA [Suspect]
     Indication: FIBROMYALGIA
     Dosage: 12.5 MG (12.5 MG, 1 IN 1 D), ORAL ; 25 MG (12.5 MG, 2 IN 1 D), ORAL; 50 MG (25 MG, 2 IN 1 D), ORAL
     Route: 048
     Dates: start: 20100301, end: 20100301
  5. SAVELLA [Suspect]
     Indication: FIBROMYALGIA
     Dosage: 12.5 MG (12.5 MG, 1 IN 1 D), ORAL ; 25 MG (12.5 MG, 2 IN 1 D), ORAL; 50 MG (25 MG, 2 IN 1 D), ORAL
     Route: 048
     Dates: start: 20100304, end: 20100307
  6. SAVELLA [Suspect]
     Indication: FIBROMYALGIA
     Dosage: 12.5 MG (12.5 MG, 1 IN 1 D), ORAL ; 25 MG (12.5 MG, 2 IN 1 D), ORAL; 50 MG (25 MG, 2 IN 1 D), ORAL
     Route: 048
     Dates: start: 20100302, end: 20100303
  7. SAVELLA [Suspect]
     Indication: FIBROMYALGIA
     Dosage: 100 MG (50 MG, 2 IN 1 D), ORAL ;
     Route: 048
     Dates: start: 20100308, end: 20101118
  8. DICYCLOMIDE (DICYCLOMINE) (20 MILLIGRAM) (DICYCLONMINE) [Concomitant]
  9. OMEPRAZOLE (OMEPRAZOLE) (20 MILLIGRAM) (OMPRAZOLE) [Concomitant]

REACTIONS (8)
  - FIBROMYALGIA [None]
  - MIGRAINE [None]
  - BLOOD PRESSURE INCREASED [None]
  - HYPOAESTHESIA [None]
  - MEMORY IMPAIRMENT [None]
  - TREMOR [None]
  - VISION BLURRED [None]
  - VOMITING [None]
